FAERS Safety Report 5866449-5 (Version None)
Quarter: 2008Q3

REPORT INFORMATION
  Report Type: 
  Country: None (occurrence: None)
  Receive Date: 20080902
  Receipt Date: 20080827
  Transmission Date: 20090109
  Serious: Yes (Hospitalization)
  Sender: FDA-Public Use
  Company Number: US-JNJFOC-20080705365

PATIENT
  Age: 45 Year
  Sex: Male
  Weight: 64.86 kg

DRUGS (17)
  1. DOXIL [Suspect]
     Indication: B-CELL LYMPHOMA
     Route: 042
  2. PROCRIT [Concomitant]
     Route: 065
  3. ATIVAN [Concomitant]
     Route: 065
  4. PREDNISONE TAB [Concomitant]
     Route: 065
  5. COLACE [Concomitant]
     Route: 065
  6. MARINOL [Concomitant]
     Route: 065
  7. PROMETHAZINE HCL [Concomitant]
     Route: 065
  8. TRAZODONE HCL [Concomitant]
     Route: 065
  9. HYDROMORPHONE HCL [Concomitant]
     Route: 065
  10. ACETAMINOPHEN [Concomitant]
     Route: 065
  11. METRONIDAZOLE [Concomitant]
     Route: 065
  12. REGLAN [Concomitant]
     Route: 065
  13. DAPSONE [Concomitant]
     Route: 065
  14. BUSPAR [Concomitant]
     Route: 065
  15. CIPRO [Concomitant]
     Route: 065
  16. PROTONIX [Concomitant]
     Route: 065
  17. NEULASTA [Concomitant]
     Route: 065

REACTIONS (1)
  - ABDOMINAL ABSCESS [None]
